FAERS Safety Report 23573487 (Version 3)
Quarter: 2024Q3

REPORT INFORMATION
  Report Type: Spontaneous
  Country: JP (occurrence: JP)
  Receive Date: 20240228
  Receipt Date: 20240814
  Transmission Date: 20241016
  Serious: Yes (Hospitalization)
  Sender: ROCHE
  Company Number: JP-CHUGAI-2024005900

PATIENT
  Age: 65 Year
  Sex: Female
  Weight: 55 kg

DRUGS (17)
  1. TECENTRIQ [Suspect]
     Active Substance: ATEZOLIZUMAB
     Indication: Non-small cell lung cancer
     Route: 065
     Dates: start: 20240202, end: 20240202
  2. AVASTIN [Suspect]
     Active Substance: BEVACIZUMAB
     Indication: Non-small cell lung cancer
     Route: 065
     Dates: start: 20240202, end: 20240202
  3. AVASTIN [Suspect]
     Active Substance: BEVACIZUMAB
     Route: 065
     Dates: start: 20240604, end: 20240604
  4. CELLCEPT [Suspect]
     Active Substance: MYCOPHENOLATE MOFETIL
     Indication: Myocarditis
     Route: 065
     Dates: start: 2024
  5. CARBOPLATIN [Suspect]
     Active Substance: CARBOPLATIN
     Indication: Non-small cell lung cancer
     Dosage: UNK
     Route: 065
     Dates: start: 20240202, end: 20240202
  6. CARBOPLATIN [Suspect]
     Active Substance: CARBOPLATIN
     Dosage: UNK
     Route: 065
     Dates: start: 20240604, end: 20240604
  7. PACLITAXEL [Suspect]
     Active Substance: PACLITAXEL
     Indication: Non-small cell lung cancer
     Dosage: UNK
     Route: 065
     Dates: start: 20240202, end: 20240202
  8. PACLITAXEL [Suspect]
     Active Substance: PACLITAXEL
     Dosage: UNK
     Route: 065
     Dates: start: 20240604, end: 20240604
  9. REBAMIPIDE [Concomitant]
     Active Substance: REBAMIPIDE
     Route: 048
  10. OLOPATADINE HYDROCHLORIDE [Concomitant]
     Active Substance: OLOPATADINE HYDROCHLORIDE
     Route: 048
  11. FUROSEMIDE [Concomitant]
     Active Substance: FUROSEMIDE
     Route: 048
  12. HUSCODE [Concomitant]
     Active Substance: CHLORPHENIRAMINE MALEATE\DIHYDROCODEINE PHOSPHATE\METHYLEPHEDRINE HYDROCHLORIDE, DL-
     Route: 048
  13. LOXOPROFEN SODIUM [Concomitant]
     Active Substance: LOXOPROFEN SODIUM
     Route: 048
  14. BISOPROLOL FUMARATE [Concomitant]
     Active Substance: BISOPROLOL FUMARATE
     Route: 048
  15. ENTRESTO [Concomitant]
     Active Substance: SACUBITRIL\VALSARTAN
     Route: 048
  16. NIFEDIPINE [Concomitant]
     Active Substance: NIFEDIPINE
     Route: 048
  17. ESAXERENONE [Concomitant]
     Active Substance: ESAXERENONE
     Route: 048

REACTIONS (6)
  - Immune-mediated myocarditis [Recovered/Resolved]
  - Off label use [Unknown]
  - Immune-mediated hepatitis [Recovered/Resolved]
  - Arthralgia [Unknown]
  - Myalgia [Unknown]
  - Malaise [Unknown]

NARRATIVE: CASE EVENT DATE: 20240219
